FAERS Safety Report 12728836 (Version 1)
Quarter: 2016Q3

REPORT INFORMATION
  Report Type: Spontaneous
  Country: US (occurrence: US)
  Receive Date: 20160908
  Receipt Date: 20160908
  Transmission Date: 20161109
  Serious: Yes (Disabling)
  Sender: FDA-Public Use
  Company Number: None

PATIENT
  Age: 89 Year
  Sex: Female
  Weight: 60.75 kg

DRUGS (1)
  1. JANUVIA [Suspect]
     Active Substance: SITAGLIPTIN PHOSPHATE
     Indication: GLUCOSE TOLERANCE IMPAIRED
     Dosage: 90 TABLET ORAL
     Route: 048
     Dates: start: 20150301, end: 20160613

REACTIONS (4)
  - Pancreatitis [None]
  - Weight decreased [None]
  - Faeces discoloured [None]
  - Diarrhoea [None]
